FAERS Safety Report 8179417-8 (Version None)
Quarter: 2012Q1

REPORT INFORMATION
  Report Type: 
  Country: None (occurrence: None)
  Receive Date: 20120302
  Receipt Date: 20120227
  Transmission Date: 20120608
  Serious: Yes (Death, Other)
  Sender: FDA-Public Use
  Company Number: CHPA2012US003780

PATIENT
  Age: 30 Year
  Sex: Male

DRUGS (3)
  1. ETHANOL [Suspect]
     Dosage: UNK, UNK
     Route: 048
  2. DEXTROMETHORPHAN HYDROBROMIDE [Suspect]
     Dosage: UNK, UNK
     Route: 048
  3. MORPHINE [Suspect]
     Dosage: UNK, UNK
     Route: 048

REACTIONS (2)
  - CARDIO-RESPIRATORY ARREST [None]
  - COMPLETED SUICIDE [None]
